FAERS Safety Report 24298888 (Version 2)
Quarter: 2024Q3

REPORT INFORMATION
  Report Type: Spontaneous
  Country: PR (occurrence: PR)
  Receive Date: 20240909
  Receipt Date: 20240920
  Transmission Date: 20241016
  Serious: No
  Sender: GUERBET
  Company Number: PR-GUERBET / LLC-PR-20240004

PATIENT
  Age: 68 Year
  Sex: Male
  Weight: 83.9 kg

DRUGS (1)
  1. OPTIRAY 320 [Suspect]
     Active Substance: IOVERSOL
     Indication: Computerised tomogram thorax
     Dates: start: 20240604, end: 20240604

REACTIONS (2)
  - Nausea [Recovered/Resolved]
  - Erythema [Unknown]

NARRATIVE: CASE EVENT DATE: 20240604
